FAERS Safety Report 8263828-6 (Version None)
Quarter: 2012Q2

REPORT INFORMATION
  Report Type: 
  Country: None (occurrence: None)
  Receive Date: 20120405
  Receipt Date: 20120402
  Transmission Date: 20120825
  Serious: Yes (Hospitalization)
  Sender: FDA-Public Use
  Company Number: US-MERCK-1204USA00371

PATIENT
  Age: 24 Year
  Sex: Male

DRUGS (2)
  1. CLOMID [Concomitant]
     Route: 065
  2. PROSCAR [Suspect]
     Indication: ALOPECIA
     Route: 048
     Dates: start: 20110108, end: 20120123

REACTIONS (7)
  - WRONG TECHNIQUE IN DRUG USAGE PROCESS [None]
  - INSOMNIA [None]
  - INTENTIONAL DRUG MISUSE [None]
  - HYPOGONADISM [None]
  - CONSTIPATION [None]
  - ERECTILE DYSFUNCTION [None]
  - ANXIETY [None]
